FAERS Safety Report 16190984 (Version 2)
Quarter: 2019Q2

REPORT INFORMATION
  Report Type: Spontaneous
  Country: IT (occurrence: IT)
  Receive Date: 20190412
  Receipt Date: 20190415
  Transmission Date: 20190711
  Serious: Yes (Life-Threatening)
  Sender: FDA-Public Use
  Company Number: IT-BAYER-2019-071592

PATIENT
  Age: 22 Year
  Sex: Female
  Weight: 50 kg

DRUGS (1)
  1. KLAIRA [Suspect]
     Active Substance: DIENOGEST\ETHINYL ESTRADIOL
     Indication: MENSTRUATION IRREGULAR
     Dosage: 2 MG, UNK
     Route: 048
     Dates: start: 20190202, end: 20190214

REACTIONS (6)
  - Hypotension [Not Recovered/Not Resolved]
  - Thrombocytopenia [Not Recovered/Not Resolved]
  - Acute kidney injury [Not Recovered/Not Resolved]
  - Atypical haemolytic uraemic syndrome [Not Recovered/Not Resolved]
  - Anaemia [Not Recovered/Not Resolved]
  - Complement factor C3 decreased [Not Recovered/Not Resolved]

NARRATIVE: CASE EVENT DATE: 20190223
